FAERS Safety Report 6839745-2 (Version None)
Quarter: 2010Q3

REPORT INFORMATION
  Report Type: 
  Country: None (occurrence: None)
  Receive Date: 20100714
  Receipt Date: 20100707
  Transmission Date: 20110219
  Serious: Yes (Hospitalization)
  Sender: FDA-Public Use
  Company Number: US-WYE-H16008810

PATIENT
  Sex: Male

DRUGS (2)
  1. TORISEL [Suspect]
     Indication: NEUROBLASTOMA
     Dosage: NOT PROVIDED
     Route: 042
     Dates: start: 20100409, end: 20100507
  2. FENTANYL [Concomitant]
     Indication: PAIN
     Dosage: NOT PROVIDED
     Route: 061

REACTIONS (3)
  - BLADDER SPASM [None]
  - PAIN IN EXTREMITY [None]
  - PYREXIA [None]
